FAERS Safety Report 12294350 (Version 6)
Quarter: 2018Q2

REPORT INFORMATION
  Report Type: Report from Study
  Country: IT (occurrence: IT)
  Receive Date: 20160422
  Receipt Date: 20180503
  Transmission Date: 20180711
  Serious: Yes (Other)
  Sender: FDA-Public Use
  Company Number: IT-ACCORD-038888

PATIENT
  Age: 71 Year
  Sex: Female

DRUGS (5)
  1. FLUOROURACIL. [Suspect]
     Active Substance: FLUOROURACIL
     Indication: COLORECTAL CANCER METASTATIC
     Dosage: ALSO RECEIVED 4868 MILLIGRAM DAILY VIA IV DRIP
     Route: 042
     Dates: start: 20160209
  2. FOLINIC ACID [Suspect]
     Active Substance: LEUCOVORIN
     Indication: COLORECTAL CANCER METASTATIC
     Dosage: ALSO RECEIVED 695.4 MG VIA IV DRIP
     Route: 042
     Dates: start: 20160209
  3. AFLIBERCEPT [Suspect]
     Active Substance: AFLIBERCEPT
     Indication: COLORECTAL CANCER METASTATIC
     Dosage: 260 MG TOTAL?ALSO RECEIVED 260 MG VIA IV DRIP
     Route: 042
     Dates: start: 20160209
  4. RACECADOTRIL [Concomitant]
     Active Substance: RACECADOTRIL
     Dates: start: 20160210, end: 20160212
  5. IRINOTECAN [Suspect]
     Active Substance: IRINOTECAN
     Indication: COLORECTAL CANCER METASTATIC
     Dosage: 312.8999939 MILLIGRAM DAILY?ALSO RECEIVED VIA IV DRIP
     Route: 042
     Dates: start: 20160209

REACTIONS (6)
  - Diarrhoea [Recovered/Resolved]
  - Anaemia [Unknown]
  - Neuropathy peripheral [Recovered/Resolved]
  - Abdominal pain [Recovered/Resolved]
  - Dysgeusia [Recovered/Resolved]
  - Asthenia [Recovered/Resolved]

NARRATIVE: CASE EVENT DATE: 20160210
